FAERS Safety Report 16274485 (Version 2)
Quarter: 2019Q2

REPORT INFORMATION
  Report Type: Spontaneous
  Country: CO (occurrence: CO)
  Receive Date: 20190504
  Receipt Date: 20190511
  Transmission Date: 20190711
  Serious: Yes (Death, Other)
  Sender: FDA-Public Use
  Company Number: CO-UNITED THERAPEUTICS-UNT-2019-008007

PATIENT

DRUGS (5)
  1. SILDENAFILO [SILDENAFIL] [Concomitant]
     Indication: PULMONARY HYPERTENSION
     Dosage: 25 MG, EVERY DAY
     Route: 048
     Dates: start: 2017, end: 20190429
  2. MACITENTAN [Concomitant]
     Active Substance: MACITENTAN
     Indication: PULMONARY HYPERTENSION
     Dosage: 100 MG, PER DAY
     Route: 048
     Dates: start: 2017, end: 20190429
  3. ACETAMINOPHEN. [Concomitant]
     Active Substance: ACETAMINOPHEN
     Indication: PAIN
     Dosage: 1000 MG, Q8H
     Route: 048
     Dates: start: 2017, end: 20190429
  4. REMODULIN [Suspect]
     Active Substance: TREPROSTINIL
     Indication: PULMONARY ARTERIAL HYPERTENSION
     Dosage: 0.002 ?G/KG, CONTINUING
     Route: 058
     Dates: start: 20170908, end: 20190429
  5. REMODULIN [Suspect]
     Active Substance: TREPROSTINIL
     Indication: PULMONARY HYPERTENSION
     Dosage: 0.040 ?G/KG, CONTINUING
     Route: 058

REACTIONS (4)
  - Disease progression [Unknown]
  - Acute myocardial infarction [Fatal]
  - Therapeutic response decreased [Unknown]
  - Cardio-respiratory arrest [Fatal]

NARRATIVE: CASE EVENT DATE: 20190429
